FAERS Safety Report 25537403 (Version 2)
Quarter: 2025Q3

REPORT INFORMATION
  Report Type: Spontaneous
  Country: US (occurrence: US)
  Receive Date: 20250710
  Receipt Date: 20250723
  Transmission Date: 20251021
  Serious: No
  Sender: NEUROCRINE BIOSCIENCES
  Company Number: US-NEUROCRINE BIOSCIENCES INC.-2025NBI08529

PATIENT
  Age: 58 Year
  Sex: Male

DRUGS (13)
  1. INGREZZA [Suspect]
     Active Substance: VALBENAZINE DITOSYLATE
     Indication: Tardive dyskinesia
     Route: 065
  2. INGREZZA [Suspect]
     Active Substance: VALBENAZINE DITOSYLATE
     Route: 065
  3. INGREZZA [Suspect]
     Active Substance: VALBENAZINE DITOSYLATE
     Route: 065
  4. DEPAKOTE [Concomitant]
     Active Substance: DIVALPROEX SODIUM
  5. OLANZAPINE [Concomitant]
     Active Substance: OLANZAPINE
  6. BUMETANIDE [Concomitant]
     Active Substance: BUMETANIDE
  7. ASPIRIN [Concomitant]
     Active Substance: ASPIRIN
  8. ATORVASTATIN [Concomitant]
     Active Substance: ATORVASTATIN
  9. MIDODRINE [Concomitant]
     Active Substance: MIDODRINE
  10. METOPROLOL [Concomitant]
     Active Substance: METOPROLOL
  11. FARXIGA [Concomitant]
     Active Substance: DAPAGLIFLOZIN PROPANEDIOL
  12. SPIRONOLACTONE [Concomitant]
     Active Substance: SPIRONOLACTONE
  13. MELATONIN [Concomitant]
     Active Substance: MELATONIN

REACTIONS (1)
  - Parkinsonism [Unknown]
